FAERS Safety Report 6333143-6 (Version None)
Quarter: 2009Q3

REPORT INFORMATION
  Report Type: 
  Country: None (occurrence: None)
  Receive Date: 20090828
  Receipt Date: 20090820
  Transmission Date: 20100115
  Serious: Yes (Hospitalization)
  Sender: FDA-Public Use
  Company Number: JP-MERCK-0908USA04171

PATIENT
  Age: 88 Year
  Sex: Female

DRUGS (3)
  1. FOSAMAX [Suspect]
     Route: 048
     Dates: start: 20070601, end: 20090801
  2. AZULENE [Concomitant]
     Indication: EYE DISCHARGE
     Route: 047
     Dates: start: 20080801
  3. TEARBALANCE [Concomitant]
     Indication: EYE DISCHARGE
     Route: 047
     Dates: start: 20080801

REACTIONS (3)
  - CATARACT [None]
  - EYE DISCHARGE [None]
  - PNEUMONIA [None]
